FAERS Safety Report 26185077 (Version 1)
Quarter: 2025Q4

REPORT INFORMATION
  Report Type: Spontaneous
  Country: CN (occurrence: CN)
  Receive Date: 20251222
  Receipt Date: 20251222
  Transmission Date: 20260117
  Serious: Yes (Other)
  Sender: HISUN PHARMACEUTICALS USA INC
  Company Number: CN-Hisun Pharmaceuticals USA Inc.-000998

PATIENT
  Age: 64 Year
  Sex: Male

DRUGS (4)
  1. IRBESARTAN [Suspect]
     Active Substance: IRBESARTAN
     Indication: Acute myocardial infarction
     Route: 048
     Dates: start: 20251121, end: 20251123
  2. METOPROLOL TARTRATE [Suspect]
     Active Substance: METOPROLOL TARTRATE
     Indication: Angina pectoris
     Route: 048
     Dates: start: 20251121, end: 20251201
  3. IRBESARTAN [Suspect]
     Active Substance: IRBESARTAN
     Indication: Arteriosclerosis coronary artery
     Route: 048
     Dates: start: 20251121, end: 20251123
  4. IRBESARTAN [Suspect]
     Active Substance: IRBESARTAN
     Indication: Acute myocardial infarction
     Route: 048
     Dates: start: 20251121, end: 20251123

REACTIONS (2)
  - Hypotension [Recovering/Resolving]
  - Product use in unapproved indication [Unknown]

NARRATIVE: CASE EVENT DATE: 20251121
